FAERS Safety Report 8915600 (Version 2)
Quarter: 2013Q1

REPORT INFORMATION
  Report Type: Spontaneous
  Country: US (occurrence: US)
  Receive Date: 20121119
  Receipt Date: 20130123
  Transmission Date: 20140127
  Serious: Yes (Hospitalization)
  Sender: FDA-Public Use
  Company Number: US-JNJFOC-20121105325

PATIENT
  Age: 40 None
  Sex: Female

DRUGS (21)
  1. REMICADE [Suspect]
     Indication: PSORIATIC ARTHROPATHY
     Route: 042
     Dates: start: 20120830, end: 20120830
  2. ACETAMINOPHEN [Concomitant]
     Dosage: 1 OR 2 CAPSULES EVERY 4-6 HOURS AS NEEDED
     Route: 065
  3. ALBUTEROL [Concomitant]
     Dosage: ACTUATION HFA AEROSOL, 2 PUFFS BY MOUTH EVERY 4 HOURS AS NEEDED
     Route: 055
  4. ATORVASTATIN [Concomitant]
     Dosage: 1/2 TABLET BY MOUTH
     Route: 048
  5. SYMBICORT [Concomitant]
     Dosage: 80-4.5 MCG/ACTUATION HFA AEROSOL, 1 PUFF BY MOUTH EVERY 12 HOURS AS NEEDED
     Route: 055
  6. CHOLECALCIFEROL [Concomitant]
     Dosage: 2000 UNIT CAPSULE
     Route: 065
  7. CLOBETASOL [Concomitant]
     Dosage: APPLY TOPICALLY UP TO TWICE DAILY TO AFFECTED AREAS PRN FOR UPTO 14 DAYS. MAY REPEAT AFTER 14 DAYS.
     Route: 061
  8. CYCLOBENZAPRINE [Concomitant]
     Indication: MUSCLE SPASMS
     Dosage: AS NEEDED
     Route: 048
  9. GLIMEPIRIDE [Concomitant]
     Dosage: DAILY MORNING; TO BE TAKEN WITH MEALS
     Route: 048
  10. ARAVA [Concomitant]
     Route: 048
  11. LIDODERM [Concomitant]
     Dosage: 5%; 1 AND 2 PATCHES AS DIRECTED; AS NEEDED 12 HOURS DAILY TO AFFECTED AREA
     Route: 061
  12. MAGNESIUM OXIDE [Concomitant]
     Route: 048
  13. MELOXICAM [Concomitant]
     Dosage: AS NEEDED
     Route: 048
  14. MULTIVITAMINS [Concomitant]
     Route: 065
  15. PRILOSEC [Concomitant]
     Dosage: DELAYED RELEASE CAPSULE
     Route: 048
  16. ACETAMINOPHEN/OXYCODONE [Concomitant]
     Indication: PAIN
     Dosage: 5-325 MG; 1 OR 2 TABLETS
     Route: 048
  17. SERTRALINE [Concomitant]
     Route: 048
  18. SPIRONOLACTONE [Concomitant]
     Indication: FLUID RETENTION
     Dosage: DAILY IN THE MORNING
     Route: 048
  19. ULTRAM [Concomitant]
     Indication: PAIN
     Dosage: 2 TABLETS DAILY AS NEEDED
     Route: 048
  20. TRAZODONE [Concomitant]
     Dosage: AT BEDTIME
     Route: 048
  21. AMBIEN [Concomitant]
     Dosage: AS NEEDED
     Route: 048

REACTIONS (7)
  - Irritable bowel syndrome [Unknown]
  - Pyrexia [Recovered/Resolved]
  - Myalgia [Recovered/Resolved]
  - Musculoskeletal stiffness [Recovered/Resolved]
  - Headache [Recovered/Resolved]
  - Hypertension [Unknown]
  - Transaminases increased [Recovering/Resolving]
